FAERS Safety Report 24425973 (Version 1)
Quarter: 2024Q4

REPORT INFORMATION
  Report Type: Spontaneous
  Country: US (occurrence: None)
  Receive Date: 20241011
  Receipt Date: 20241011
  Transmission Date: 20250114
  Serious: Yes (Other)
  Sender: SUPERNUS
  Company Number: US-SUPERNUS Pharmaceuticals, Inc.-SUP202409-003656

PATIENT
  Age: 42 Year
  Sex: Female

DRUGS (6)
  1. QELBREE [Suspect]
     Active Substance: VILOXAZINE HYDROCHLORIDE
     Indication: Product used for unknown indication
     Dates: start: 202409, end: 202409
  2. LITHIUM [Concomitant]
     Active Substance: LITHIUM
     Dosage: NOT PROVIDED
  3. LATUDA [Concomitant]
     Active Substance: LURASIDONE HYDROCHLORIDE
     Dosage: NOT PROVIDED
  4. LAMICTAL [Concomitant]
     Active Substance: LAMOTRIGINE
     Dosage: NOT PROVIDED
  5. TRAZODONE [Concomitant]
     Active Substance: TRAZODONE HYDROCHLORIDE
     Dosage: NOT PROVIDED
  6. GUANFACINE [Concomitant]
     Active Substance: GUANFACINE
     Dosage: NOT PROVIDED

REACTIONS (1)
  - Ileus [Recovered/Resolved]
